FAERS Safety Report 7919008-4 (Version None)
Quarter: 2011Q4

REPORT INFORMATION
  Report Type: 
  Country: None (occurrence: None)
  Receive Date: 20111116
  Receipt Date: 20111107
  Transmission Date: 20120403
  Serious: Yes (Disabling)
  Sender: FDA-Public Use
  Company Number: CA-ASTRAZENECA-2011SE67200

PATIENT
  Age: 66 Year
  Sex: Female

DRUGS (2)
  1. MAVIK [Concomitant]
  2. CRESTOR [Suspect]
     Route: 048

REACTIONS (6)
  - BLISTER [None]
  - CHROMATURIA [None]
  - GAIT DISTURBANCE [None]
  - MEMORY IMPAIRMENT [None]
  - BLOOD CREATINE PHOSPHOKINASE INCREASED [None]
  - PAIN IN EXTREMITY [None]
